FAERS Safety Report 5072264-5 (Version None)
Quarter: 2006Q3

REPORT INFORMATION
  Report Type: 
  Country: None (occurrence: None)
  Receive Date: 20060807
  Receipt Date: 20060728
  Transmission Date: 20061208
  Serious: Yes (Other)
  Sender: FDA-Public Use
  Company Number: CA-JNJFOC-20060604168

PATIENT
  Age: 65 Year
  Sex: Female
  Weight: 91 kg

DRUGS (1)
  1. CAELYX [Suspect]
     Indication: METASTATIC NEOPLASM
     Route: 042

REACTIONS (6)
  - ABDOMINAL PAIN [None]
  - DIZZINESS [None]
  - HYPOTENSION [None]
  - LOSS OF CONSCIOUSNESS [None]
  - PULSE ABNORMAL [None]
  - PULSE ABSENT [None]
